FAERS Safety Report 8835247 (Version 2)
Quarter: 2012Q4

REPORT INFORMATION
  Report Type: 
  Country: FR (occurrence: FR)
  Receive Date: 20121011
  Receipt Date: 20121102
  Transmission Date: 20130627
  Serious: No
  Sender: FDA-Public Use
  Company Number: FR-PFIZER INC-2012247281

PATIENT
  Age: 58 Year
  Sex: Female

DRUGS (2)
  1. SOMAVERT [Suspect]
     Indication: ACROMEGALY
     Dosage: UNK
  2. SOMAVERT [Suspect]
     Indication: PITUITARY ADENOMA

REACTIONS (1)
  - Off label use [Unknown]
